FAERS Safety Report 8003563-2 (Version None)
Quarter: 2011Q4

REPORT INFORMATION
  Report Type: 
  Country: None (occurrence: None)
  Receive Date: 20111222
  Receipt Date: 20111216
  Transmission Date: 20120403
  Serious: Yes (Death)
  Sender: FDA-Public Use
  Company Number: GB-CELGENEUS-167-20785-11122312

PATIENT
  Age: 87 Year
  Sex: Female
  Weight: 74 kg

DRUGS (10)
  1. IBANDRONATE SODIUM [Concomitant]
     Route: 065
  2. RANITIDINE [Concomitant]
     Route: 065
  3. THALIDOMIDE [Suspect]
     Route: 048
     Dates: start: 20110922, end: 20111107
  4. ADCAL-D3 [Concomitant]
     Route: 065
  5. CITALOPRAM [Concomitant]
     Route: 065
  6. ASPIRIN [Concomitant]
     Route: 065
  7. ATENOLOL [Concomitant]
     Route: 065
  8. GABAPENTIN [Concomitant]
     Route: 065
  9. SIMVASTATIN [Concomitant]
     Route: 065
  10. CLOPIDOGREL [Concomitant]
     Route: 065

REACTIONS (2)
  - ISCHAEMIA [None]
  - CEREBROVASCULAR ACCIDENT [None]
